FAERS Safety Report 7521665-1 (Version None)
Quarter: 2011Q2

REPORT INFORMATION
  Report Type: 
  Country: None (occurrence: None)
  Receive Date: 20110524
  Receipt Date: 20110513
  Transmission Date: 20111010
  Serious: Yes (Hospitalization, Other)
  Sender: FDA-Public Use
  Company Number: 2011-1147

PATIENT
  Age: 37 Year
  Sex: Female
  Weight: 113.4 kg

DRUGS (7)
  1. ZOLOFT [Concomitant]
  2. SOMATULINE DEPOT [Suspect]
     Indication: ACROMEGALY
     Dosage: 60 MG (60 MG, 1 IN 1 M); 60 MG (60 MG, 1 IN 1 M)
     Dates: start: 20090701, end: 20100301
  3. SOMATULINE DEPOT [Suspect]
     Indication: ACROMEGALY
     Dosage: 60 MG (60 MG, 1 IN 1 M); 60 MG (60 MG, 1 IN 1 M)
     Dates: start: 20101101
  4. CLARITIN [Concomitant]
  5. LOESTRIN (ANOVLAR) [Concomitant]
  6. SYNTHROID [Concomitant]
  7. VITAMIN D [Concomitant]

REACTIONS (5)
  - FATIGUE [None]
  - VITAMIN D DECREASED [None]
  - WEIGHT INCREASED [None]
  - INSULIN-LIKE GROWTH FACTOR DECREASED [None]
  - CHOLECYSTITIS INFECTIVE [None]
